FAERS Safety Report 9278118 (Version 1)
Quarter: 2013Q2

REPORT INFORMATION
  Report Type: Spontaneous
  Country: US (occurrence: None)
  Receive Date: 20130503
  Receipt Date: 20130503
  Transmission Date: 20140414
  Serious: Yes (Hospitalization)
  Sender: FDA-Public Use
  Company Number: None

PATIENT
  Sex: Female

DRUGS (6)
  1. PRINCIPAL SECRET, EYE SAVER GEL [Suspect]
     Indication: THERAPEUTIC SKIN CARE TOPICAL
     Dosage: DAILY, SKIN CARE?7 DAYS
  2. PRINCIPAL SECRET, GENTLE DEEP CLEANSER [Suspect]
     Indication: THERAPEUTIC SKIN CARE TOPICAL
     Dosage: DAILY, SKIN CARE?7 DAYS
  3. PRINCIPAL SECRET, MOISTURE SPF 8 [Suspect]
     Indication: DRY SKIN PROPHYLAXIS
     Dosage: DAILY, SKIN CARE?7 DAYS
  4. PRINCIPAL SECRET, ENZYME TREATMENT [Suspect]
     Indication: THERAPEUTIC SKIN CARE TOPICAL
     Dosage: DAILY, SKIN CARE?7 DAYS
  5. PRINCIPAL SECRET, GENTLE SCRUB [Suspect]
     Indication: THERAPEUTIC SKIN CARE TOPICAL
     Dosage: 2-3 X WEEK, SKIN CARE?7 DAYS
  6. RECLAIM, AGE BRAKER [Suspect]
     Indication: SKIN WRINKLING
     Dosage: DAILY, SKIN CARE?7 DAYS

REACTIONS (2)
  - Rash [None]
  - Eye swelling [None]
